FAERS Safety Report 8952283 (Version 2)
Quarter: 2013Q1

REPORT INFORMATION
  Report Type: Spontaneous
  Country: US (occurrence: US)
  Receive Date: 20121205
  Receipt Date: 20130325
  Transmission Date: 20140127
  Serious: No
  Sender: FDA-Public Use
  Company Number: US-009507513-1212USA000774

PATIENT
  Age: 34 None
  Sex: Female
  Weight: 68.27 kg

DRUGS (1)
  1. NUVARING [Suspect]
     Indication: CONTRACEPTION
     Dosage: UP TO 3 WEEKS WITH ONE WEEK RING FREE BREAK
     Route: 067
     Dates: start: 201110

REACTIONS (5)
  - Muscle spasms [Recovered/Resolved]
  - Abnormal withdrawal bleeding [Recovered/Resolved]
  - Incorrect drug administration duration [Unknown]
  - Inappropriate schedule of drug administration [Unknown]
  - Incorrect drug administration duration [Unknown]
